FAERS Safety Report 9090759 (Version 1)
Quarter: 2013Q1

REPORT INFORMATION
  Report Type: Spontaneous
  Country: US (occurrence: US)
  Receive Date: 20130201
  Receipt Date: 20130201
  Transmission Date: 20140127
  Serious: No
  Sender: FDA-Public Use
  Company Number: US-GALDERMA-US-GDP-12415005

PATIENT
  Age: 14 None
  Sex: Female
  Weight: 54 kg

DRUGS (3)
  1. EPIDUO [Suspect]
     Indication: ACNE
     Route: 061
     Dates: start: 201208
  2. CETAPHIL [Suspect]
     Indication: THERAPEUTIC SKIN CARE TOPICAL
     Route: 061
     Dates: start: 201208
  3. CETAPHIL [Suspect]
     Indication: THERAPEUTIC SKIN CARE TOPICAL
     Route: 061
     Dates: start: 201208

REACTIONS (6)
  - Skin burning sensation [Recovered/Resolved]
  - Erythema [Recovered/Resolved]
  - Dry skin [Not Recovered/Not Resolved]
  - Skin exfoliation [Recovered/Resolved]
  - Pain of skin [Recovered/Resolved]
  - Drug ineffective [Not Recovered/Not Resolved]
